FAERS Safety Report 7564375-7 (Version None)
Quarter: 2011Q2

REPORT INFORMATION
  Report Type: 
  Country: None (occurrence: None)
  Receive Date: 20110622
  Receipt Date: 20110609
  Transmission Date: 20111010
  Serious: Yes (Other)
  Sender: FDA-Public Use
  Company Number: PHHY2011US51723

PATIENT
  Sex: Male
  Weight: 113.38 kg

DRUGS (3)
  1. GLEEVEC [Suspect]
     Indication: CHRONIC MYELOID LEUKAEMIA
     Dosage: 800 MG,DAILY
     Route: 048
     Dates: start: 20081230
  2. FAMOTIDINE [Concomitant]
  3. CARAFATE [Concomitant]

REACTIONS (2)
  - HAEMORRHOIDS [None]
  - HAEMATOCHEZIA [None]
